FAERS Safety Report 9429865 (Version 1)
Quarter: 2013Q3

REPORT INFORMATION
  Report Type: Spontaneous
  Country: IN (occurrence: None)
  Receive Date: 20130726
  Receipt Date: 20130726
  Transmission Date: 20140515
  Serious: Yes (Hospitalization)
  Sender: FDA-Public Use
  Company Number: AUR-APL-2013-06122

PATIENT
  Age: 26 Year
  Sex: Female

DRUGS (6)
  1. LAMIVUDINE [Suspect]
     Indication: HIV TEST POSITIVE
     Dosage: STOPPED
  2. ZIDOVUDINE (ZIDOVUDINE) [Concomitant]
  3. NEVIRAPINE (NEVIRAPINE) [Concomitant]
  4. CO-TRIMOXAZOLE (CO-TRIMOXAZOLE) [Concomitant]
  5. LOPINAVIR W/RITONAVIR (KALETRA) [Concomitant]
  6. EFAVIRENZ (EFAVIRENZ) [Concomitant]

REACTIONS (5)
  - Rash generalised [None]
  - Rash erythematous [None]
  - Rash pruritic [None]
  - Rash maculo-papular [None]
  - Pyrexia [None]
